FAERS Safety Report 23185538 (Version 1)
Quarter: 2023Q4

REPORT INFORMATION
  Report Type: Spontaneous
  Country: FR (occurrence: FR)
  Receive Date: 20231115
  Receipt Date: 20231115
  Transmission Date: 20240110
  Serious: Yes (Other)
  Sender: FDA-Public Use
  Company Number: None

PATIENT
  Age: 75 Year
  Sex: Male
  Weight: 72 kg

DRUGS (12)
  1. CAPECITABINE [Suspect]
     Active Substance: CAPECITABINE
     Indication: Head and neck cancer metastatic
     Dosage: DAILY DOSE: 4 DOSAGE FORM
     Route: 048
     Dates: end: 20231011
  2. CAPECITABINE [Suspect]
     Active Substance: CAPECITABINE
     Indication: Metastasis
     Dosage: DAILY DOSE: 4 DOSAGE FORM
     Route: 048
     Dates: end: 20231011
  3. ACETAMINOPHEN [Concomitant]
     Active Substance: ACETAMINOPHEN
     Dosage: 1000 MG, PO: 3 /D IF NECESSARY
     Route: 048
  4. ELIQUIS [Concomitant]
     Active Substance: APIXABAN
  5. LACTULOSE [Concomitant]
     Active Substance: LACTULOSE
     Route: 048
  6. SOTALOL [Concomitant]
     Active Substance: SOTALOL
  7. ESOMEPRAZOLE [Concomitant]
     Active Substance: ESOMEPRAZOLE
  8. Spasfon [Concomitant]
  9. OXYCODONE [Concomitant]
     Active Substance: OXYCODONE
     Dosage: DAILY DOSE: 20 MILLIGRAM
     Route: 048
  10. OXYCODONE [Concomitant]
     Active Substance: OXYCODONE
     Dosage: DAILY DOSE: 100 MILLIGRAM
     Route: 048
  11. OXYCODONE [Concomitant]
     Active Substance: OXYCODONE
     Dosage: 10 MG, PO: 4/D ?DAILY DOSE: 40 MILLIGRAM
     Route: 048
  12. Pyostacin [Concomitant]
     Indication: Metastasis
     Dates: start: 20231003

REACTIONS (2)
  - Folliculitis [Not Recovered/Not Resolved]
  - Off label use [Recovered/Resolved]

NARRATIVE: CASE EVENT DATE: 20231001
